FAERS Safety Report 11150398 (Version 3)
Quarter: 2016Q2

REPORT INFORMATION
  Report Type: Report from Study
  Country: KR (occurrence: KR)
  Receive Date: 20150531
  Receipt Date: 20160602
  Transmission Date: 20160815
  Serious: Yes (Other)
  Sender: FDA-Public Use
  Company Number: PHHY2014KR056196

PATIENT
  Sex: Female

DRUGS (1)
  1. TASIGNA [Suspect]
     Active Substance: NILOTINIB
     Indication: CHRONIC MYELOID LEUKAEMIA
     Dosage: 300 MG, BID
     Route: 048
     Dates: start: 20120905

REACTIONS (3)
  - Hyperthyroidism [Not Recovered/Not Resolved]
  - Rash [Recovered/Resolved]
  - Cytogenetic analysis abnormal [Recovered/Resolved]

NARRATIVE: CASE EVENT DATE: 2012
